FAERS Safety Report 9494238 (Version 1)
Quarter: 2013Q2

REPORT INFORMATION
  Report Type: Spontaneous
  Country: US (occurrence: None)
  Receive Date: 20130416
  Receipt Date: 20130416
  Transmission Date: 20140414
  Serious: Yes (Disabling)
  Sender: FDA-Public Use
  Company Number: 2012033310

PATIENT
  Sex: Male
  Weight: 130.64 kg

DRUGS (19)
  1. HIZENTRA (IMMUNOGLOBULIN HUMAN NORMAL) [Suspect]
     Indication: IMMUNODEFICIENCY COMMON VARIABLE
  2. FUROSEMIDE (FUROSEMIDE) [Concomitant]
  3. FENTANYL (FENTANYL) [Concomitant]
  4. METFORMIN (METFORMIN) [Concomitant]
  5. CARVEDILOL (CARVEDILOL) [Concomitant]
  6. SERTRALINE (SERTRALINE) [Concomitant]
  7. LEVEMIR (INSULIN DETEMIR) [Concomitant]
  8. NOVOLOG (INSULIN ASPART) [Concomitant]
  9. FERROUS SULFATE (FERROUS SULFATE) [Concomitant]
  10. ALPRAZOLAM (ALPRAZOLAM) [Concomitant]
  11. ZOLPIDEM (ZOLPIDEM) [Concomitant]
  12. DILTIAZEM [Concomitant]
  13. OMEPRAZOLE (OMEPRAZOLE) [Concomitant]
  14. ALBUTEROL (ALBUTEROL) [Concomitant]
  15. OXYCODONE (OXYCODONE) [Concomitant]
  16. POTASSIUM CHLORIDE (POTASSIUM CHLORIDE) [Concomitant]
  17. TESTOSTERONE (TESTOSTERONE) [Concomitant]
  18. ASPIRIN (ACETYLSALICYLIC ACID) [Concomitant]
  19. VITAMIN D3 (COLECALCIFEROL) [Concomitant]

REACTIONS (1)
  - Renal impairment [None]
